FAERS Safety Report 7271631-9 (Version None)
Quarter: 2011Q1

REPORT INFORMATION
  Report Type: 
  Country: None (occurrence: None)
  Receive Date: 20110125
  Receipt Date: 20110125
  Transmission Date: 20110831
  Serious: Yes (Hospitalization)
  Sender: FDA-Public Use
  Company Number: None

PATIENT
  Sex: Male
  Weight: 105 kg

DRUGS (2)
  1. AZACITIDINE [Suspect]
  2. REVLIMID [Suspect]

REACTIONS (4)
  - DIARRHOEA [None]
  - COLITIS [None]
  - FATIGUE [None]
  - CONSTIPATION [None]
